FAERS Safety Report 7681459-3 (Version None)
Quarter: 2011Q3

REPORT INFORMATION
  Report Type: 
  Country: None (occurrence: None)
  Receive Date: 20110812
  Receipt Date: 20110803
  Transmission Date: 20111222
  Serious: Yes (Hospitalization, Other)
  Sender: FDA-Public Use
  Company Number: JP-B.I. PHARMACEUTICALS,INC./RIDGEFIELD-2011-DE-04455GD

PATIENT
  Age: 60 Year
  Sex: Male

DRUGS (4)
  1. L-DOPA [Suspect]
     Indication: PARKINSON'S DISEASE
     Route: 048
  2. PRAMIPEXOLE DIHYDROCHLORIDE [Suspect]
     Indication: PARKINSON'S DISEASE
     Dosage: DOSE INCREASE (SELF-ADJUSTED)
     Route: 048
  3. COMT INHIBITOR [Suspect]
     Indication: PARKINSON'S DISEASE
     Route: 048
  4. MAO-B INHIBITOR [Suspect]
     Indication: PARKINSON'S DISEASE
     Route: 048

REACTIONS (4)
  - BLOOD CREATINE PHOSPHOKINASE INCREASED [None]
  - INAPPROPRIATE ANTIDIURETIC HORMONE SECRETION [None]
  - NEUROLEPTIC MALIGNANT SYNDROME [None]
  - HYPONATRAEMIA [None]
